FAERS Safety Report 9969939 (Version 1)
Quarter: 2014Q1

REPORT INFORMATION
  Report Type: Spontaneous
  Country: US (occurrence: US)
  Receive Date: 20140306
  Receipt Date: 20140306
  Transmission Date: 20141002
  Serious: No
  Sender: FDA-Public Use
  Company Number: US-SA-2013SA100475

PATIENT
  Age: 65 Year
  Sex: Female

DRUGS (2)
  1. GAVISCON [Suspect]
     Route: 065
  2. SODIUM ALGINATE/SODIUM BICARBONATE/A LGINIC ACID/MAGNESIUM TRISILICATE/ALUMINIUM HYDROXIDE GEL, DRIED [Suspect]
     Route: 065

REACTIONS (3)
  - Dry mouth [Not Recovered/Not Resolved]
  - Oropharyngeal pain [Not Recovered/Not Resolved]
  - Cough [Not Recovered/Not Resolved]
